FAERS Safety Report 5802375-5 (Version None)
Quarter: 2008Q3

REPORT INFORMATION
  Report Type: 
  Country: None (occurrence: None)
  Receive Date: 20080707
  Receipt Date: 20080627
  Transmission Date: 20090109
  Serious: Yes (Hospitalization)
  Sender: FDA-Public Use
  Company Number: ES-GENENTECH-261434

PATIENT
  Sex: Male

DRUGS (2)
  1. EFALIZUMAB [Suspect]
     Indication: PSORIASIS
     Dosage: 0.9 ML, 1/WEEK
     Route: 058
     Dates: start: 20060912, end: 20070101
  2. EFALIZUMAB [Suspect]
     Dosage: 0.9 ML, 1/WEEK
     Route: 058
     Dates: start: 20080228, end: 20080402

REACTIONS (3)
  - ARTHRALGIA [None]
  - OEDEMA [None]
  - PNEUMONIA [None]
